FAERS Safety Report 17115440 (Version 1)
Quarter: 2019Q4

REPORT INFORMATION
  Report Type: Spontaneous
  Country: US (occurrence: US)
  Receive Date: 20191204
  Receipt Date: 20191204
  Transmission Date: 20200122
  Serious: Yes (Other)
  Sender: FDA-Public Use
  Company Number: None

PATIENT
  Age: 36 Year
  Sex: Female
  Weight: 123.75 kg

DRUGS (1)
  1. LOSARTAN POTASSIUM AND HYDROCHLOROTHIAZIDE [Suspect]
     Active Substance: HYDROCHLOROTHIAZIDE\LOSARTAN POTASSIUM
     Indication: HYPERTENSION
     Dosage: ?          QUANTITY:1 TABLET(S);?
     Route: 048
     Dates: start: 20191202, end: 20191204

REACTIONS (17)
  - Abdominal distension [None]
  - Fatigue [None]
  - Paraesthesia [None]
  - Nausea [None]
  - Pain in jaw [None]
  - Muscular weakness [None]
  - Arthralgia [None]
  - Cold sweat [None]
  - Tachycardia [None]
  - Depression [None]
  - Dyspnoea [None]
  - Dizziness [None]
  - Confusional state [None]
  - Insomnia [None]
  - Hypoaesthesia [None]
  - Panic attack [None]
  - Muscle spasms [None]

NARRATIVE: CASE EVENT DATE: 20191202
